FAERS Safety Report 8811663 (Version 1)
Quarter: 2012Q4

REPORT INFORMATION
  Report Type: 
  Country: US (occurrence: US)
  Receive Date: 20120927
  Receipt Date: 20120927
  Transmission Date: 20130627
  Serious: Yes (Hospitalization)
  Sender: FDA-Public Use
  Company Number: US-MUTUAL PHARMACEUTICAL COMPANY, INC.-BCTM20110064

PATIENT
  Age: 45 Year
  Sex: Female
  Weight: 54.48 kg

DRUGS (2)
  1. BACTRIM TABLETS [Suspect]
     Indication: EXPOSURE VIA SEMEN
     Route: 065
  2. LEVOXYL [Concomitant]
     Indication: HYPOTHYROIDISM
     Route: 048

REACTIONS (4)
  - Drug hypersensitivity [None]
  - Pruritus [Recovered/Resolved]
  - Dyspnoea [Recovered/Resolved]
  - Exposure via body fluid [None]
